FAERS Safety Report 8131112-7 (Version None)
Quarter: 2012Q1

REPORT INFORMATION
  Report Type: 
  Country: None (occurrence: None)
  Receive Date: 20120209
  Receipt Date: 20120209
  Transmission Date: 20120608
  Serious: Yes (Disabling)
  Sender: FDA-Public Use
  Company Number: None

PATIENT
  Age: 40 Year
  Sex: Female
  Weight: 77.3 kg

DRUGS (3)
  1. LEVOTHYROXINE SODIUM [Concomitant]
  2. CYMBALTA [Concomitant]
  3. TYSABRI [Suspect]
     Indication: MULTIPLE SCLEROSIS
     Dosage: 300 MG 1 X MONTH INTRAVENOUS
     Route: 042
     Dates: start: 20111101

REACTIONS (10)
  - HORDEOLUM [None]
  - MEMORY IMPAIRMENT [None]
  - SWELLING FACE [None]
  - URTICARIA [None]
  - FEELING ABNORMAL [None]
  - LOCAL SWELLING [None]
  - OEDEMA PERIPHERAL [None]
  - ABNORMAL BEHAVIOUR [None]
  - HEPATIC ENZYME INCREASED [None]
  - ORAL HERPES [None]
